FAERS Safety Report 9580497 (Version 1)
Quarter: 2013Q3

REPORT INFORMATION
  Report Type: Spontaneous
  Country: US (occurrence: None)
  Receive Date: 20130916
  Receipt Date: 20130916
  Transmission Date: 20140515
  Serious: Yes (Other)
  Sender: FDA-Public Use
  Company Number: JPI-P-026495

PATIENT
  Age: 51 Year
  Sex: Female
  Weight: 77.11 kg

DRUGS (16)
  1. XYREM [Suspect]
     Indication: SOMNOLENCE
     Dosage: 4.5 GM (2.25 GM, 2 IN 1 D)
     Route: 048
     Dates: start: 20121103, end: 2012
  2. XYREM [Suspect]
     Indication: NARCOLEPSY
     Dosage: 4.5 GM (2.25 GM, 2 IN 1 D)
     Route: 048
     Dates: start: 20121103, end: 2012
  3. AMPHETAMINE DEXTROAMPHETAMINE MIXED SALTS [Concomitant]
  4. EZETIMIBE [Concomitant]
  5. ENALAPRIL [Concomitant]
  6. CARVEDILOL [Concomitant]
  7. DULOXETINE HYDROCHLORIDE [Concomitant]
  8. TOPIRAMATE [Concomitant]
  9. PAROXETINE HYDROCHLORIDE [Concomitant]
  10. ARIPIPRAZOLE [Concomitant]
  11. OMEPRAZOLE [Concomitant]
  12. FOLATE [Concomitant]
  13. INSULIN DETEMIR [Concomitant]
  14. METFORMIN [Concomitant]
  15. PRAMLINTIDE ACETATE [Concomitant]
  16. MELOXICAM [Concomitant]

REACTIONS (6)
  - Hypertension [None]
  - Sleep apnoea syndrome [None]
  - Chest pain [None]
  - Neck pain [None]
  - Rash [None]
  - Rash [None]
